FAERS Safety Report 10039228 (Version 1)
Quarter: 2014Q1

REPORT INFORMATION
  Report Type: Spontaneous
  Country: PK (occurrence: PK)
  Receive Date: 20140326
  Receipt Date: 20140326
  Transmission Date: 20141002
  Serious: Yes (Death)
  Sender: FDA-Public Use
  Company Number: PHHY2014PK035245

PATIENT
  Sex: Male

DRUGS (1)
  1. VOLTRAL [Suspect]
     Dosage: 25 MG, UNK
     Route: 054

REACTIONS (1)
  - Expired drug administered [Fatal]
